FAERS Safety Report 15894070 (Version 1)
Quarter: 2019Q1

REPORT INFORMATION
  Report Type: Spontaneous
  Country: ES (occurrence: ES)
  Receive Date: 20190131
  Receipt Date: 20190131
  Transmission Date: 20190417
  Serious: Yes (Death, Hospitalization)
  Sender: FDA-Public Use
  Company Number: ES-ROCHE-GNE212699

PATIENT
  Age: 74 Year
  Sex: Female

DRUGS (3)
  1. OMEPRAZOLE. [Concomitant]
     Active Substance: OMEPRAZOLE
     Indication: PRODUCT USED FOR UNKNOWN INDICATION
     Dosage: 20 MG, UNK
     Route: 048
     Dates: start: 20020103, end: 20020103
  2. ACTILYSE [Suspect]
     Active Substance: ALTEPLASE
     Indication: ACUTE MYOCARDIAL INFARCTION
     Dosage: 100 MG, SINGLE
     Route: 042
     Dates: start: 20020103, end: 20020103
  3. ADIRO [Suspect]
     Active Substance: ASPIRIN
     Indication: ACUTE MYOCARDIAL INFARCTION
     Dosage: 100 MG, COATED TABLET
     Route: 048

REACTIONS (3)
  - Cardiac death [Fatal]
  - Aphasia [Not Recovered/Not Resolved]
  - Paresis [Not Recovered/Not Resolved]

NARRATIVE: CASE EVENT DATE: 20020103
